FAERS Safety Report 16815110 (Version 2)
Quarter: 2019Q3

REPORT INFORMATION
  Report Type: Spontaneous
  Country: JP (occurrence: JP)
  Receive Date: 20190917
  Receipt Date: 20190925
  Transmission Date: 20191005
  Serious: Yes (Death)
  Sender: FDA-Public Use
  Company Number: JP-ABBVIE-19P-087-2927900-00

PATIENT
  Sex: Male

DRUGS (1)
  1. LEUPLIN SR [Suspect]
     Active Substance: LEUPROLIDE ACETATE
     Indication: PROSTATE CANCER
     Route: 050
     Dates: end: 20190920

REACTIONS (1)
  - Death [Fatal]
